FAERS Safety Report 23439281 (Version 1)
Quarter: 2024Q1

REPORT INFORMATION
  Report Type: Spontaneous
  Country: US (occurrence: US)
  Receive Date: 20240124
  Receipt Date: 20240124
  Transmission Date: 20240410
  Serious: No
  Sender: FDA-Public Use
  Company Number: US-PFIZER INC-PV202400010594

PATIENT
  Age: 55 Year
  Sex: Female

DRUGS (3)
  1. XELJANZ [Suspect]
     Active Substance: TOFACITINIB CITRATE
     Indication: Granuloma annulare
     Dosage: 5 MG, 2X/DAY
     Route: 048
     Dates: start: 20231213
  2. XELJANZ [Suspect]
     Active Substance: TOFACITINIB CITRATE
     Indication: Eczema
     Dosage: 5 MG, 1X/DAY
  3. ADBRY [Concomitant]
     Active Substance: TRALOKINUMAB-LDRM

REACTIONS (2)
  - Hepatic enzyme increased [Not Recovered/Not Resolved]
  - Off label use [Unknown]
